FAERS Safety Report 25304556 (Version 1)
Quarter: 2025Q2

REPORT INFORMATION
  Report Type: Spontaneous
  Country: NO (occurrence: NO)
  Receive Date: 20250513
  Receipt Date: 20250513
  Transmission Date: 20250717
  Serious: Yes (Death, Other)
  Sender: MYLAN
  Company Number: NO-ROCHE-10000268144

PATIENT
  Age: 24 Year
  Sex: Female

DRUGS (32)
  1. GEMCITABINE [Suspect]
     Active Substance: GEMCITABINE
     Indication: B-cell lymphoma
  2. GEMCITABINE [Suspect]
     Active Substance: GEMCITABINE
     Route: 065
  3. GEMCITABINE [Suspect]
     Active Substance: GEMCITABINE
     Route: 065
  4. GEMCITABINE [Suspect]
     Active Substance: GEMCITABINE
  5. DOXORUBICIN [Suspect]
     Active Substance: DOXORUBICIN
     Indication: B-cell lymphoma
  6. DOXORUBICIN [Suspect]
     Active Substance: DOXORUBICIN
     Route: 065
  7. DOXORUBICIN [Suspect]
     Active Substance: DOXORUBICIN
     Route: 065
  8. DOXORUBICIN [Suspect]
     Active Substance: DOXORUBICIN
  9. OXALIPLATIN [Suspect]
     Active Substance: OXALIPLATIN
     Indication: B-cell lymphoma
  10. OXALIPLATIN [Suspect]
     Active Substance: OXALIPLATIN
     Route: 065
  11. OXALIPLATIN [Suspect]
     Active Substance: OXALIPLATIN
     Route: 065
  12. OXALIPLATIN [Suspect]
     Active Substance: OXALIPLATIN
  13. POLATUZUMAB VEDOTIN [Suspect]
     Active Substance: POLATUZUMAB VEDOTIN
     Indication: B-cell lymphoma
  14. POLATUZUMAB VEDOTIN [Suspect]
     Active Substance: POLATUZUMAB VEDOTIN
     Route: 065
  15. POLATUZUMAB VEDOTIN [Suspect]
     Active Substance: POLATUZUMAB VEDOTIN
     Route: 065
  16. POLATUZUMAB VEDOTIN [Suspect]
     Active Substance: POLATUZUMAB VEDOTIN
  17. CYCLOPHOSPHAMIDE [Suspect]
     Active Substance: CYCLOPHOSPHAMIDE
     Indication: B-cell lymphoma
  18. CYCLOPHOSPHAMIDE [Suspect]
     Active Substance: CYCLOPHOSPHAMIDE
     Route: 065
  19. CYCLOPHOSPHAMIDE [Suspect]
     Active Substance: CYCLOPHOSPHAMIDE
     Route: 065
  20. CYCLOPHOSPHAMIDE [Suspect]
     Active Substance: CYCLOPHOSPHAMIDE
  21. ETOPOSIDE PHOSPHATE [Suspect]
     Active Substance: ETOPOSIDE PHOSPHATE
     Indication: B-cell lymphoma
  22. ETOPOSIDE PHOSPHATE [Suspect]
     Active Substance: ETOPOSIDE PHOSPHATE
     Route: 065
  23. ETOPOSIDE PHOSPHATE [Suspect]
     Active Substance: ETOPOSIDE PHOSPHATE
     Route: 065
  24. ETOPOSIDE PHOSPHATE [Suspect]
     Active Substance: ETOPOSIDE PHOSPHATE
  25. PREDNISONE [Suspect]
     Active Substance: PREDNISONE
     Indication: B-cell lymphoma
  26. PREDNISONE [Suspect]
     Active Substance: PREDNISONE
     Route: 065
  27. PREDNISONE [Suspect]
     Active Substance: PREDNISONE
     Route: 065
  28. PREDNISONE [Suspect]
     Active Substance: PREDNISONE
  29. VINCRISTINE SULFATE [Suspect]
     Active Substance: VINCRISTINE SULFATE
     Indication: B-cell lymphoma
  30. VINCRISTINE SULFATE [Suspect]
     Active Substance: VINCRISTINE SULFATE
     Route: 065
  31. VINCRISTINE SULFATE [Suspect]
     Active Substance: VINCRISTINE SULFATE
     Route: 065
  32. VINCRISTINE SULFATE [Suspect]
     Active Substance: VINCRISTINE SULFATE

REACTIONS (13)
  - Thrombotic microangiopathy [Fatal]
  - Colitis [Unknown]
  - Tumour lysis syndrome [Unknown]
  - Abdominal pain [Unknown]
  - Blood uric acid increased [Unknown]
  - Blood creatinine increased [Unknown]
  - Blood phosphorus increased [Unknown]
  - General physical health deterioration [Unknown]
  - Nausea [Unknown]
  - Leukocytosis [Unknown]
  - C-reactive protein increased [Unknown]
  - Drug ineffective [Unknown]
  - Off label use [Unknown]
